FAERS Safety Report 8888516 (Version 3)
Quarter: 2013Q1

REPORT INFORMATION
  Report Type: Spontaneous
  Country: AU (occurrence: AU)
  Receive Date: 20121106
  Receipt Date: 20130329
  Transmission Date: 20140127
  Serious: Yes (Other)
  Sender: FDA-Public Use
  Company Number: PHHY2012AU080996

PATIENT
  Age: 73 Year
  Sex: Female

DRUGS (5)
  1. EXJADE [Suspect]
     Indication: MYELODYSPLASTIC SYNDROME
     Dosage: 500 MG, DAILY
     Route: 048
     Dates: start: 20120823
  2. EXJADE [Suspect]
     Dosage: 4 DAYS ON AND 3 DAYS OFF
     Route: 048
  3. EXJADE [Suspect]
     Dosage: 500 MG, DAILY
     Route: 048
  4. XARELTO [Concomitant]
     Dosage: UNK UKN, UNK
     Route: 065
  5. ASPIRIN [Concomitant]

REACTIONS (31)
  - Intervertebral disc compression [Recovering/Resolving]
  - Respiratory depression [Recovering/Resolving]
  - Arrhythmia [Recovering/Resolving]
  - Asthma [Not Recovered/Not Resolved]
  - Osteoporosis [Recovering/Resolving]
  - Blood iron increased [Recovering/Resolving]
  - Haemoglobin decreased [Recovering/Resolving]
  - Vision blurred [Recovering/Resolving]
  - Muscular weakness [Recovering/Resolving]
  - Motor dysfunction [Recovering/Resolving]
  - Confusional state [Recovering/Resolving]
  - Cough [Recovering/Resolving]
  - Nightmare [Recovering/Resolving]
  - Rash pruritic [Recovering/Resolving]
  - Poor quality sleep [Recovering/Resolving]
  - Constipation [Recovering/Resolving]
  - Gait disturbance [Recovering/Resolving]
  - Joint swelling [Recovering/Resolving]
  - Urine flow decreased [Recovering/Resolving]
  - Blood pressure fluctuation [Recovering/Resolving]
  - Muscle fatigue [Recovering/Resolving]
  - Gastrointestinal pain [Recovering/Resolving]
  - Dyspepsia [Recovering/Resolving]
  - Psychiatric symptom [Recovering/Resolving]
  - Social avoidant behaviour [Recovering/Resolving]
  - Illusion [Recovering/Resolving]
  - Dependence [Recovering/Resolving]
  - Ill-defined disorder [Recovering/Resolving]
  - Depression [Recovering/Resolving]
  - Decreased immune responsiveness [Recovering/Resolving]
  - Throat irritation [Recovering/Resolving]
